FAERS Safety Report 9857285 (Version 1)
Quarter: 2014Q1

REPORT INFORMATION
  Report Type: Report from Study
  Country: US (occurrence: US)
  Receive Date: 20140130
  Receipt Date: 20140130
  Transmission Date: 20141002
  Serious: Yes (Hospitalization)
  Sender: FDA-Public Use
  Company Number: US-ABBVIE-14P-163-1192820-00

PATIENT
  Age: 46 Year
  Sex: Female
  Weight: 83.99 kg

DRUGS (4)
  1. HUMIRA [Suspect]
     Indication: COLITIS ULCERATIVE
     Route: 058
     Dates: start: 201310
  2. HUMIRA [Suspect]
     Route: 058
     Dates: start: 201304, end: 201307
  3. HUMIRA [Suspect]
     Route: 058
     Dates: start: 201303, end: 201303
  4. HUMIRA [Suspect]
     Route: 058
     Dates: start: 201303, end: 201303

REACTIONS (6)
  - Weight decreased [Recovered/Resolved]
  - Diarrhoea [Recovered/Resolved]
  - Decreased appetite [Recovered/Resolved]
  - Depression [Recovered/Resolved]
  - Colitis ulcerative [Unknown]
  - Colitis ulcerative [Unknown]
